FAERS Safety Report 22070383 (Version 1)
Quarter: 2023Q1

REPORT INFORMATION
  Report Type: Spontaneous
  Country: US (occurrence: None)
  Receive Date: 20230303
  Receipt Date: 20230303
  Transmission Date: 20230417
  Serious: Yes (Hospitalization)
  Sender: FDA-Public Use
  Company Number: None

PATIENT

DRUGS (2)
  1. RABIES VACCINE [Suspect]
     Active Substance: RABIES VACCINE
  2. HUMAN RABIES VIRUS IMMUNE GLOBULIN [Suspect]
     Active Substance: HUMAN RABIES VIRUS IMMUNE GLOBULIN

REACTIONS (2)
  - Wrong technique in product usage process [None]
  - Lack of injection site rotation [None]
